FAERS Safety Report 7708743-9 (Version None)
Quarter: 2011Q3

REPORT INFORMATION
  Report Type: 
  Country: None (occurrence: None)
  Receive Date: 20110825
  Receipt Date: 20110825
  Transmission Date: 20111222
  Serious: Yes (Life-Threatening, Hospitalization, Disabling, Other)
  Sender: FDA-Public Use
  Company Number: None

PATIENT
  Sex: Female
  Weight: 55.791 kg

DRUGS (2)
  1. HALDOL [Concomitant]
     Indication: DEPRESSION
     Dosage: UNKNOWN
     Route: 030
     Dates: start: 19860129, end: 19860201
  2. COMPAZINE [Suspect]
     Indication: DEPRESSION
     Dosage: UNKNOWN
     Route: 030
     Dates: start: 19860129, end: 19860129

REACTIONS (2)
  - GRAND MAL CONVULSION [None]
  - PARKINSON'S DISEASE [None]
